FAERS Safety Report 13898285 (Version 1)
Quarter: 2017Q3

REPORT INFORMATION
  Report Type: Spontaneous
  Country: US (occurrence: US)
  Receive Date: 20170823
  Receipt Date: 20170823
  Transmission Date: 20171127
  Serious: Yes (Hospitalization)
  Sender: FDA-Public Use
  Company Number: US-SA-2017SA153663

PATIENT
  Age: 65 Year
  Sex: Female

DRUGS (5)
  1. TACROLIMUS. [Suspect]
     Active Substance: TACROLIMUS
     Indication: IMMUNOSUPPRESSION
     Route: 065
  2. ALEMTUZUMAB [Suspect]
     Active Substance: ALEMTUZUMAB
     Indication: TRANSPLANT REJECTION
     Route: 065
  3. PREDNISONE. [Suspect]
     Active Substance: PREDNISONE
     Indication: IMMUNOSUPPRESSION
     Route: 065
  4. VORICONAZOLE. [Concomitant]
     Active Substance: VORICONAZOLE
     Indication: PROPHYLAXIS
     Route: 065
  5. VALGANCICLOVIR. [Concomitant]
     Active Substance: VALGANCICLOVIR
     Indication: PROPHYLAXIS
     Route: 065

REACTIONS (16)
  - Pain in extremity [Unknown]
  - Sinus pain [Unknown]
  - Headache [Unknown]
  - Sinusitis [Unknown]
  - Ecthyma [Unknown]
  - Pyrexia [Unknown]
  - Hypotension [Unknown]
  - Periorbital cellulitis [Unknown]
  - Feeling hot [Unknown]
  - Pseudomonal bacteraemia [Unknown]
  - Tachycardia [Unknown]
  - Blister [Unknown]
  - Tenderness [Unknown]
  - Off label use [Unknown]
  - Eye discharge [Unknown]
  - Eye swelling [Unknown]
